FAERS Safety Report 8083860-5 (Version None)
Quarter: 2012Q1

REPORT INFORMATION
  Report Type: 
  Country: None (occurrence: None)
  Receive Date: 20120128
  Receipt Date: 20110201
  Transmission Date: 20120608
  Serious: No
  Sender: FDA-Public Use
  Company Number: US-ABBOTT-11P-163-0703149-00

PATIENT
  Sex: Female
  Weight: 65.83 kg

DRUGS (3)
  1. HUMIRA [Suspect]
     Indication: COLITIS ULCERATIVE
     Dates: start: 20090101
  2. HUMIRA [Suspect]
     Indication: RHEUMATOID ARTHRITIS
  3. IBUPROFEN (ADVIL) [Concomitant]
     Indication: HEADACHE

REACTIONS (4)
  - INJECTION SITE URTICARIA [None]
  - INCORRECT DOSE ADMINISTERED BY DEVICE [None]
  - DEVICE MALFUNCTION [None]
  - INJECTION SITE HAEMATOMA [None]
